FAERS Safety Report 8577111-2 (Version None)
Quarter: 2012Q3

REPORT INFORMATION
  Report Type: 
  Country: None (occurrence: None)
  Receive Date: 20120807
  Receipt Date: 20120731
  Transmission Date: 20120928
  Serious: Yes (Death, Hospitalization)
  Sender: FDA-Public Use
  Company Number: TW-BAXTER-2012BAX013381

PATIENT

DRUGS (2)
  1. DIANEAL LOW CALCIUM W/ DEXTROSE 2.5% [Suspect]
     Route: 033
  2. EXTRANEAL [Suspect]
     Route: 033

REACTIONS (2)
  - PERITONITIS [None]
  - MALNUTRITION [None]
